FAERS Safety Report 21080738 (Version 1)
Quarter: 2022Q3

REPORT INFORMATION
  Report Type: Spontaneous
  Country: US (occurrence: None)
  Receive Date: 20220713
  Receipt Date: 20220713
  Transmission Date: 20221026
  Serious: Yes (Hospitalization)
  Sender: FDA-Public Use
  Company Number: None

PATIENT
  Age: 40 Year
  Sex: Male
  Weight: 116.66 kg

DRUGS (13)
  1. TEMOZOLOMIDE [Suspect]
     Active Substance: TEMOZOLOMIDE
     Indication: Brain neoplasm malignant
     Dosage: OTHER FREQUENCY : 21D ON7D OFF;?
     Route: 048
     Dates: start: 20220625
  2. AMLODIPINE [Concomitant]
  3. ATORVASTATIN [Concomitant]
  4. BETAMETHASONE [Concomitant]
  5. COMBIGAN [Concomitant]
  6. COSOPT [Concomitant]
  7. LACTULOSE [Concomitant]
  8. LATANOPROST [Concomitant]
  9. LEVETIRACETAM [Concomitant]
  10. NORCO [Concomitant]
  11. ONDANSETRON [Concomitant]
  12. TIMOLOL [Concomitant]
  13. VALSARTAN [Concomitant]
     Active Substance: VALSARTAN

REACTIONS (1)
  - Seizure [None]
